FAERS Safety Report 14670969 (Version 1)
Quarter: 2018Q1

REPORT INFORMATION
  Report Type: Spontaneous
  Country: US (occurrence: US)
  Receive Date: 20180321
  Receipt Date: 20180321
  Transmission Date: 20180509
  Serious: Yes (Hospitalization)
  Sender: FDA-Public Use
  Company Number: None

PATIENT
  Age: 85 Year
  Sex: Male

DRUGS (5)
  1. AMLODIPINE [Concomitant]
     Active Substance: AMLODIPINE BESYLATE
  2. CLOPIDOGREL [Concomitant]
     Active Substance: CLOPIDOGREL BISULFATE
  3. BUMETANIDE. [Concomitant]
     Active Substance: BUMETANIDE
  4. JADENU [Suspect]
     Active Substance: DEFERASIROX
     Indication: HYPERTENSION
     Route: 048
     Dates: start: 20151201
  5. ATORVASTATIN [Concomitant]
     Active Substance: ATORVASTATIN

REACTIONS (2)
  - Weight increased [None]
  - Oedema [None]

NARRATIVE: CASE EVENT DATE: 20180320
